FAERS Safety Report 21400514 (Version 1)
Quarter: 2022Q4

REPORT INFORMATION
  Report Type: Report from Study
  Country: US (occurrence: US)
  Receive Date: 20221003
  Receipt Date: 20221003
  Transmission Date: 20230113
  Serious: No
  Sender: FDA-Public Use
  Company Number: US-NOVARTISTESTPH-NVSC2022US220451

PATIENT
  Sex: Male

DRUGS (1)
  1. ENTRESTO [Suspect]
     Active Substance: SACUBITRIL\VALSARTAN
     Indication: Product used for unknown indication
     Dosage: 1 DOSAGE FORM, BID
     Route: 048

REACTIONS (8)
  - Bronchitis [Unknown]
  - Cough [Unknown]
  - Dyspnoea [Unknown]
  - Costochondritis [Unknown]
  - Musculoskeletal chest pain [Unknown]
  - Irritability [Unknown]
  - Anxiety [Unknown]
  - Tearfulness [Unknown]
